FAERS Safety Report 15845670 (Version 1)
Quarter: 2019Q1

REPORT INFORMATION
  Report Type: Spontaneous
  Country: GB (occurrence: GB)
  Receive Date: 20190119
  Receipt Date: 20190119
  Transmission Date: 20190417
  Serious: Yes (Disabling, Other)
  Sender: FDA-Public Use
  Company Number: GB-AUROBINDO-AUR-APL-2019-000765

PATIENT
  Age: 81 Year
  Sex: Male
  Weight: 72.57 kg

DRUGS (2)
  1. MIRTAZAPINE FILM-COATED TABLET [Suspect]
     Active Substance: MIRTAZAPINE
     Indication: PANIC ATTACK
     Dosage: 30 MILLIGRAM
     Route: 048
     Dates: end: 20181210
  2. NITRAZEPAM [Concomitant]
     Active Substance: NITRAZEPAM
     Indication: INSOMNIA
     Dosage: 5 MILLIGRAM, AS NECESSARY, (1 OR 2 EVERY NIGHT)
     Route: 065
     Dates: start: 20180925

REACTIONS (2)
  - Drug intolerance [Unknown]
  - Arthralgia [Recovering/Resolving]

NARRATIVE: CASE EVENT DATE: 20181119
